FAERS Safety Report 5317428-8 (Version None)
Quarter: 2007Q2

REPORT INFORMATION
  Report Type: 
  Country: None (occurrence: None)
  Receive Date: 20070503
  Receipt Date: 20070503
  Transmission Date: 20071010
  Serious: Yes (Hospitalization)
  Sender: FDA-Public Use
  Company Number: None

PATIENT
  Age: 77 Year
  Sex: Male

DRUGS (1)
  1. EZETIMIBE/SIMVASTATIN [Suspect]
     Dosage: 1 TAB EVERY DAY PO
     Route: 048
     Dates: start: 20061127, end: 20070120

REACTIONS (6)
  - BLOOD CREATININE INCREASED [None]
  - CARDIAC DISORDER [None]
  - HEPATIC ENZYME INCREASED [None]
  - HYPERKALAEMIA [None]
  - RHABDOMYOLYSIS [None]
  - URINE OUTPUT DECREASED [None]
